FAERS Safety Report 8353955-7 (Version None)
Quarter: 2012Q2

REPORT INFORMATION
  Report Type: 
  Country: None (occurrence: None)
  Receive Date: 20120511
  Receipt Date: 20120508
  Transmission Date: 20120825
  Serious: No
  Sender: FDA-Public Use
  Company Number: US-PFIZER INC-2012077577

PATIENT
  Sex: Female
  Weight: 64.9 kg

DRUGS (20)
  1. ATIVAN [Concomitant]
     Dosage: UNK
  2. CYMBALTA [Concomitant]
     Dosage: UNK
  3. LOVAZA [Concomitant]
     Dosage: UNK
  4. PLAVIX [Concomitant]
     Dosage: UNK
  5. TRILIPIX [Concomitant]
     Dosage: UNK
  6. CHANTIX [Suspect]
     Dosage: UNK
     Route: 048
     Dates: end: 20100801
  7. PROAIR HFA [Concomitant]
     Dosage: UNK
  8. PAXIL [Concomitant]
     Dosage: UNK
  9. FLONASE [Concomitant]
     Dosage: UNK
  10. NORVASC [Concomitant]
     Dosage: UNK
  11. AMPHETAMINES [Concomitant]
     Dosage: UNK
  12. CARVEDILOL [Concomitant]
     Dosage: UNK
  13. GLUCOPHAGE [Concomitant]
     Dosage: UNK
  14. SEROQUEL [Concomitant]
     Dosage: UNK
  15. SYMBICORT [Concomitant]
  16. ASPIRIN [Concomitant]
     Dosage: UNK
  17. RESTORIL [Concomitant]
     Dosage: UNK
  18. AMBIEN [Concomitant]
     Dosage: UNK
  19. CHANTIX [Suspect]
     Indication: SMOKING CESSATION THERAPY
     Dosage: 0.5 MG, 1X/DAY
     Route: 048
     Dates: start: 20100101
  20. DIOVAN HCT [Concomitant]
     Dosage: UNK

REACTIONS (4)
  - ABNORMAL DREAMS [None]
  - RASH PRURITIC [None]
  - HYPERSENSITIVITY [None]
  - COUGH [None]
